FAERS Safety Report 15290311 (Version 1)
Quarter: 2018Q3

REPORT INFORMATION
  Report Type: Spontaneous
  Country: US (occurrence: US)
  Receive Date: 20180817
  Receipt Date: 20180817
  Transmission Date: 20181010
  Serious: No
  Sender: FDA-Public Use
  Company Number: US-SA-2018SA163310

PATIENT
  Sex: Female

DRUGS (1)
  1. ICY HOT MEDICATED, ADVANCED RELIEF [Suspect]
     Active Substance: MENTHOL
     Indication: PAIN
     Dosage: UNK UNK, UNK
     Route: 065

REACTIONS (3)
  - Application site pain [Unknown]
  - Visual impairment [Unknown]
  - Localised infection [Unknown]
